FAERS Safety Report 23041424 (Version 1)
Quarter: 2023Q4

REPORT INFORMATION
  Report Type: Other
  Country: US (occurrence: US)
  Receive Date: 20231007
  Receipt Date: 20231007
  Transmission Date: 20240110
  Serious: Yes (Hospitalization)
  Sender: FDA-Public Use
  Company Number: US-MAYNE-2022MYN000219

PATIENT
  Age: 80 Year
  Sex: Male

DRUGS (2)
  1. CLOZAPINE [Suspect]
     Active Substance: CLOZAPINE
     Indication: Product used for unknown indication
     Dates: end: 202301
  2. CLOZAPINE [Suspect]
     Active Substance: CLOZAPINE
     Dates: start: 2023

REACTIONS (1)
  - Hospitalisation [Unknown]
